FAERS Safety Report 8858307 (Version 1)
Quarter: 2012Q4

REPORT INFORMATION
  Report Type: 
  Country: US (occurrence: US)
  Receive Date: 20121024
  Receipt Date: 20121024
  Transmission Date: 20130627
  Serious: No
  Sender: FDA-Public Use
  Company Number: US-AMGEN-USASP2011062185

PATIENT
  Age: 50 Year
  Sex: Female

DRUGS (8)
  1. ENBREL [Suspect]
     Indication: RHEUMATOID ARTHRITIS
     Dosage: 50 mg, qwk
  2. CELEBREX [Concomitant]
  3. MIRCETTE [Concomitant]
  4. VICODIN [Concomitant]
     Dosage: 500 mg, UNK
  5. ALLEGRA [Concomitant]
     Dosage: 60 mg, UNK
  6. LEVOTHYROXIN [Concomitant]
     Indication: HYPOTHYROIDISM
     Dosage: 25 UNK, UNK
  7. VITAMIN B-12 [Concomitant]
  8. MEDROL                             /00049601/ [Concomitant]
     Dosage: 2 mg, UNK

REACTIONS (4)
  - Oropharyngeal pain [Unknown]
  - Ear pain [Unknown]
  - Nasopharyngitis [Unknown]
  - Sinusitis [Unknown]
